FAERS Safety Report 24444901 (Version 2)
Quarter: 2024Q4

REPORT INFORMATION
  Report Type: Report from Study
  Country: US (occurrence: US)
  Receive Date: 20241016
  Receipt Date: 20241017
  Transmission Date: 20250115
  Serious: No
  Sender: ROCHE
  Company Number: US-ROCHE-3009772

PATIENT
  Age: 51 Year
  Sex: Male

DRUGS (3)
  1. RITUXAN [Suspect]
     Active Substance: RITUXIMAB
     Indication: Myasthenia gravis
     Dosage: 4500 MG ON DAY 1 AND DAY 15
     Route: 041
  2. RITUXAN [Suspect]
     Active Substance: RITUXIMAB
     Dosage: 500 MG SINGLE-USE VIAL
     Route: 041
     Dates: start: 20230306, end: 20240306
  3. MESTINON [Concomitant]
     Active Substance: PYRIDOSTIGMINE BROMIDE
     Indication: Product used for unknown indication
     Route: 065

REACTIONS (2)
  - Off label use [Unknown]
  - No adverse event [Unknown]
